FAERS Safety Report 8437344-2 (Version None)
Quarter: 2012Q2

REPORT INFORMATION
  Report Type: 
  Country: None (occurrence: None)
  Receive Date: 20120614
  Receipt Date: 20120313
  Transmission Date: 20120825
  Serious: No
  Sender: FDA-Public Use
  Company Number: US-AMGEN-USASP2012014622

PATIENT
  Age: 81 Year
  Sex: Female
  Weight: 53 kg

DRUGS (3)
  1. PROLIA [Suspect]
     Dosage: 60 MG, Q6MO
     Route: 058
     Dates: start: 20110303, end: 20110908
  2. PROLIA [Suspect]
     Indication: OSTEOPOROSIS POSTMENOPAUSAL
     Dosage: 60 MG, Q6MO
     Route: 058
     Dates: start: 20110908, end: 20120306
  3. CALCIUM [Concomitant]
     Dosage: UNK
     Route: 048

REACTIONS (2)
  - BACK PAIN [None]
  - PAIN IN JAW [None]
